FAERS Safety Report 18895647 (Version 1)
Quarter: 2021Q1

REPORT INFORMATION
  Report Type: Spontaneous
  Country: FR (occurrence: FR)
  Receive Date: 20210216
  Receipt Date: 20210216
  Transmission Date: 20210420
  Serious: Yes (Life-Threatening, Hospitalization, Other)
  Sender: FDA-Public Use
  Company Number: FR-AUROBINDO-AUR-APL-2021-005802

PATIENT
  Age: 77 Year
  Sex: Male
  Weight: 72.3 kg

DRUGS (5)
  1. MELATONINE [Suspect]
     Active Substance: MELATONIN
     Indication: PRODUCT USED FOR UNKNOWN INDICATION
     Dosage: 120 MILLIGRAM 1 TOTAL
     Route: 048
     Dates: start: 20210125, end: 20210125
  2. ALPRAZOLAM. [Suspect]
     Active Substance: ALPRAZOLAM
     Indication: PRODUCT USED FOR UNKNOWN INDICATION
     Dosage: 17.5 MILLIGRAM 1 TOTAL
     Route: 048
     Dates: start: 20210125, end: 20210125
  3. FLUOXETINE [Suspect]
     Active Substance: FLUOXETINE HYDROCHLORIDE
     Indication: PRODUCT USED FOR UNKNOWN INDICATION
     Dosage: 420 MILLIGRAM 1 TOTAL
     Route: 048
     Dates: start: 20210125, end: 20210125
  4. LAMICTAL [Suspect]
     Active Substance: LAMOTRIGINE
     Indication: PRODUCT USED FOR UNKNOWN INDICATION
     Dosage: 2000 MILLIGRAM 1 TOTAL
     Route: 048
     Dates: start: 20210125, end: 20210125
  5. TERALITHE [Suspect]
     Active Substance: LITHIUM CARBONATE
     Indication: PRODUCT USED FOR UNKNOWN INDICATION
     Dosage: 4000 MILLIGRAM TOTAL
     Route: 048
     Dates: start: 20210125, end: 20210125

REACTIONS (3)
  - Antipsychotic drug level increased [Recovered/Resolved]
  - Coma [Recovered/Resolved]
  - Arrhythmia supraventricular [Recovering/Resolving]

NARRATIVE: CASE EVENT DATE: 20210125
